FAERS Safety Report 9671477 (Version 1)
Quarter: 2013Q4

REPORT INFORMATION
  Report Type: Spontaneous
  Country: US (occurrence: None)
  Receive Date: 20131105
  Receipt Date: 20131105
  Transmission Date: 20140711
  Serious: No
  Sender: FDA-Public Use
  Company Number: None

PATIENT
  Age: 71 Year
  Sex: Female
  Weight: 57.61 kg

DRUGS (2)
  1. PRADAXA [Suspect]
     Indication: CEREBROVASCULAR ACCIDENT PROPHYLAXIS
  2. PRADAXA [Suspect]

REACTIONS (6)
  - Oropharyngeal pain [None]
  - Abdominal pain upper [None]
  - Oesophageal pain [None]
  - Burning sensation [None]
  - Foreign body [None]
  - Product physical issue [None]
